FAERS Safety Report 4266744-X (Version None)
Quarter: 2004Q1

REPORT INFORMATION
  Report Type: 
  Country: None (occurrence: None)
  Receive Date: 20040108
  Receipt Date: 20031231
  Transmission Date: 20041129
  Serious: Yes (Disabling, Other)
  Sender: FDA-Public Use
  Company Number: GB-GLAXOSMITHKLINE-B0318873A

PATIENT
  Age: 42 Year
  Sex: Female

DRUGS (11)
  1. SALBUTAMOL [Suspect]
     Route: 065
  2. BECLOMETHASONE DIPROPIONATE [Suspect]
     Route: 065
  3. BENDROFLUAZIDE [Suspect]
     Route: 065
  4. ECHINACEA [Suspect]
     Route: 048
  5. CODEINE PHOSPHATE [Suspect]
     Route: 065
  6. DICLOFENAC SODIUM [Suspect]
     Route: 065
  7. DOTHIEPIN HYDROCHLORIDE [Suspect]
     Route: 065
  8. DOXAPRAM [Suspect]
     Route: 065
  9. IRON SULPHATE [Suspect]
     Route: 065
  10. ADALAT [Suspect]
     Route: 065
  11. TRANEXAMIC ACID [Suspect]
     Route: 065

REACTIONS (2)
  - COAGULOPATHY [None]
  - DRUG INTERACTION [None]
